FAERS Safety Report 4567324-9 (Version None)
Quarter: 2005Q1

REPORT INFORMATION
  Report Type: 
  Country: None (occurrence: None)
  Receive Date: 20050127
  Receipt Date: 20050123
  Transmission Date: 20050727
  Serious: Yes (Hospitalization, Other)
  Sender: FDA-Public Use
  Company Number: 2005018289

PATIENT
  Age: 41 Year
  Sex: Male
  Weight: 88.5 kg

DRUGS (6)
  1. LIPITOR [Suspect]
     Indication: HYPERLIPIDAEMIA
     Dosage: 80 MG (80 MG, 1 IN 1 D), ORAL
     Route: 048
     Dates: start: 20050118, end: 20050120
  2. LIPITOR [Suspect]
     Indication: LOW DENSITY LIPOPROTEIN
     Dosage: 80 MG (80 MG, 1 IN 1 D), ORAL
     Route: 048
     Dates: start: 20050118, end: 20050120
  3. LIPITOR [Suspect]
     Indication: MYOCARDIAL INFARCTION
     Dosage: 80 MG (80 MG, 1 IN 1 D), ORAL
     Route: 048
     Dates: start: 20050118, end: 20050120
  4. CLOPIDOGREL BISULFATE [Concomitant]
  5. ACETYLSALICYLIC ACID SRT [Concomitant]
  6. METOPROLOL TARTRATE [Concomitant]

REACTIONS (1)
  - RHABDOMYOLYSIS [None]
